FAERS Safety Report 16109620 (Version 3)
Quarter: 2019Q2

REPORT INFORMATION
  Report Type: Report from Study
  Country: None (occurrence: US)
  Receive Date: 20190324
  Receipt Date: 20190419
  Transmission Date: 20190711
  Serious: Yes (Other)
  Sender: FDA-Public Use
  Company Number: US-ABBVIE-18K-163-2565767-00

PATIENT
  Sex: Female
  Weight: 66.74 kg

DRUGS (2)
  1. HUMIRA [Suspect]
     Active Substance: ADALIMUMAB
     Indication: CROHN^S DISEASE
     Route: 058
     Dates: start: 201904
  2. HUMIRA [Suspect]
     Active Substance: ADALIMUMAB
     Indication: CROHN^S DISEASE
     Route: 058
     Dates: start: 2016, end: 201904

REACTIONS (8)
  - Chronic kidney disease [Not Recovered/Not Resolved]
  - Abdominal pain [Recovered/Resolved]
  - Gout [Not Recovered/Not Resolved]
  - Bile duct stone [Recovered/Resolved]
  - Injection site pain [Not Recovered/Not Resolved]
  - Cholecystectomy [Unknown]
  - Stool pH increased [Unknown]
  - Lactose intolerance [Unknown]

NARRATIVE: CASE EVENT DATE: 2016
